FAERS Safety Report 7596714-5 (Version None)
Quarter: 2011Q3

REPORT INFORMATION
  Report Type: 
  Country: None (occurrence: None)
  Receive Date: 20110708
  Receipt Date: 20110705
  Transmission Date: 20111222
  Serious: No
  Sender: FDA-Public Use
  Company Number: US-PFIZER INC-2011150436

PATIENT
  Sex: Female
  Weight: 86.168 kg

DRUGS (2)
  1. MAXALT [Suspect]
     Indication: MIGRAINE
     Dosage: 10 MG, AS NEEDED
  2. PRISTIQ [Interacting]
     Indication: DEPRESSION
     Dosage: UNK,DAILY
     Dates: start: 20110601

REACTIONS (6)
  - DIZZINESS [None]
  - NAUSEA [None]
  - HEADACHE [None]
  - DRUG INTERACTION [None]
  - HEART RATE INCREASED [None]
  - FEELING ABNORMAL [None]
